FAERS Safety Report 7757772-8 (Version None)
Quarter: 2011Q3

REPORT INFORMATION
  Report Type: 
  Country: None (occurrence: None)
  Receive Date: 20110918
  Receipt Date: 20110907
  Transmission Date: 20111222
  Serious: Yes (Hospitalization, Other)
  Sender: FDA-Public Use
  Company Number: US-CELGENEUS-163-21660-11090876

PATIENT
  Sex: Male
  Weight: 65.9 kg

DRUGS (28)
  1. DURAGESIC-100 [Concomitant]
     Indication: PAIN
     Dosage: 25 MICROGRAM
     Route: 062
     Dates: start: 20110815
  2. TRIPLE MIX (BENADRYL, MAALOX, LIDOCAINE) [Concomitant]
     Dosage: 1 TEASPOON
     Route: 048
     Dates: start: 20110718
  3. ZOFRAN [Concomitant]
     Indication: PREMEDICATION
     Dosage: 32 MILLIGRAM
     Route: 041
     Dates: start: 20110705, end: 20110809
  4. DEXAMETHASONE [Concomitant]
     Indication: PREMEDICATION
     Dosage: 10 MILLIGRAM
     Route: 041
     Dates: start: 20110627, end: 20110809
  5. ACTIQ [Concomitant]
     Indication: PAIN
     Dosage: 200 MICROGRAM
     Dates: start: 20110718
  6. METOPROLOL TARTRATE [Concomitant]
     Indication: HYPERTENSION
     Dosage: 50 MILLIGRAM
     Route: 048
  7. SINGULAIR [Concomitant]
     Indication: SEASONAL ALLERGY
     Dosage: 10 MILLIGRAM
     Route: 048
  8. MAGNESIUM SULFATE [Concomitant]
     Dosage: 4 GRAM
     Route: 041
     Dates: start: 20110809, end: 20110809
  9. MORPHINE SULFATE [Concomitant]
     Indication: PAIN
     Dosage: 4 MILLIGRAM
     Route: 041
     Dates: start: 20110815, end: 20110815
  10. ERBITUX [Suspect]
     Dosage: 40 MILLIGRAM
     Route: 065
     Dates: start: 20110627
  11. ASTEPRO [Concomitant]
     Indication: SEASONAL ALLERGY
     Dosage: 205.5 MICROGRAM
     Route: 045
  12. ZOFRAN [Concomitant]
     Indication: NAUSEA
     Dosage: 8 MILLIGRAM
     Route: 048
     Dates: start: 20110627
  13. 0.9% NS [Concomitant]
     Dosage: 1000 MILLILITER
     Route: 041
     Dates: start: 20110808, end: 20110808
  14. MAGNESIUM OXIDE [Concomitant]
     Dosage: 400 MILLIGRAM
     Route: 048
     Dates: start: 20110808, end: 20110815
  15. 0.9% NS [Concomitant]
     Dosage: 1000 MILLILITER
     Route: 041
     Dates: start: 20110815, end: 20110823
  16. PROCHLORPERAZINE MALEATE [Concomitant]
     Indication: NAUSEA
     Dosage: 10 MILLIGRAM
     Route: 048
     Dates: start: 20110627
  17. ABRAXANE [Suspect]
     Route: 041
     Dates: start: 20110705, end: 20110809
  18. CISPLATIN [Suspect]
     Route: 065
     Dates: start: 20110705, end: 20110809
  19. ATIVAN [Concomitant]
     Indication: NAUSEA
     Dosage: .5 MILLIGRAM
     Route: 048
     Dates: start: 20110627
  20. KLOR-CON [Concomitant]
     Dosage: 40 MILLIEQUIVALENTS
     Route: 048
     Dates: start: 20110822
  21. QUALAQUIN [Concomitant]
     Dosage: 324 MILLIGRAM
     Route: 048
  22. POTASSIUM CHLORIDE [Concomitant]
     Dosage: 40 MILLIEQUIVALENTS
     Route: 041
     Dates: start: 20110815, end: 20110823
  23. FAMOTIDINE [Concomitant]
     Indication: PREMEDICATION
     Dosage: 20 MILLIGRAM
     Route: 041
     Dates: start: 20110627, end: 20110809
  24. VERAMYST [Concomitant]
     Indication: SEASONAL ALLERGY
     Dosage: 2 SPRAYS
     Route: 045
  25. 0.9% NS [Concomitant]
     Indication: DEHYDRATION
     Dosage: 1000 MILLILITER
     Route: 041
     Dates: start: 20110801, end: 20110801
  26. MAGNESIUM SULFATE [Concomitant]
     Dosage: 2 GRAM
     Route: 041
     Dates: start: 20110815, end: 20110823
  27. DOMEBORO [Concomitant]
     Indication: DERMATITIS
     Dosage: ONE APP
     Route: 061
     Dates: start: 20110810
  28. BENADRYL [Concomitant]
     Indication: PREMEDICATION
     Dosage: 50 MILLIGRAM
     Route: 041
     Dates: start: 20110627, end: 20110809

REACTIONS (6)
  - WEIGHT DECREASED [None]
  - FALL [None]
  - DERMATITIS ACNEIFORM [None]
  - DEHYDRATION [None]
  - HYPERNATRAEMIA [None]
  - STOMATITIS [None]
